FAERS Safety Report 5052014-9 (Version None)
Quarter: 2006Q3

REPORT INFORMATION
  Report Type: 
  Country: None (occurrence: None)
  Receive Date: 20060711
  Receipt Date: 20060629
  Transmission Date: 20061208
  Serious: Yes (Hospitalization, Other)
  Sender: FDA-Public Use
  Company Number: 28623

PATIENT
  Age: 58 Year
  Sex: Female

DRUGS (4)
  1. LEUCOVORIN CALCIUM [Suspect]
     Indication: ADENOCARCINOMA
     Dosage: 400MG/M2/ DAY 1 OF WKS 1, 3, 5
     Dates: start: 20041116
  2. LEUCOVORIN CALCIUM [Suspect]
     Indication: METASTASIS
     Dosage: 400MG/M2/ DAY 1 OF WKS 1, 3, 5
     Dates: start: 20041116
  3. LEUCOVORIN CALCIUM [Suspect]
     Indication: ADENOCARCINOMA
     Dosage: 400MG/M2/ DAY 1 OF WKS 1, 3, 5
     Dates: start: 20041214
  4. LEUCOVORIN CALCIUM [Suspect]
     Indication: METASTASIS
     Dosage: 400MG/M2/ DAY 1 OF WKS 1, 3, 5
     Dates: start: 20041214

REACTIONS (5)
  - ABDOMINAL PAIN [None]
  - DIARRHOEA [None]
  - NAUSEA [None]
  - PAIN [None]
  - VOMITING [None]
